FAERS Safety Report 7624753-4 (Version None)
Quarter: 2011Q3

REPORT INFORMATION
  Report Type: 
  Country: None (occurrence: None)
  Receive Date: 20110720
  Receipt Date: 20110111
  Transmission Date: 20111222
  Serious: Yes (Other)
  Sender: FDA-Public Use
  Company Number: US-BAYER-2011-005910

PATIENT
  Age: 67 Year
  Sex: Female
  Weight: 70 kg

DRUGS (26)
  1. FRESH FROZEN PLASMA [Concomitant]
     Dosage: 2 U, UNK
     Dates: start: 20000424
  2. NORVASC [Concomitant]
     Indication: PRODUCT USED FOR UNKNOWN INDICATION
     Dosage: UNK
     Dates: start: 20000101
  3. LOPRESSOR [Concomitant]
     Dosage: 12.5 MG, BID
     Route: 048
  4. CALCIUM CHLORIDE [Concomitant]
     Dosage: UNK
     Dates: start: 20000424, end: 20000424
  5. AMICAR [Concomitant]
     Dosage: UNK
     Dates: start: 20000424, end: 20000424
  6. LORAZEPAM [Concomitant]
     Dosage: 5 MG Q6HR AS NEEDED
     Route: 048
  7. COREG [Concomitant]
     Indication: PRODUCT USED FOR UNKNOWN INDICATION
     Dosage: UNK
     Dates: start: 20000101
  8. PRILOSEC [Concomitant]
     Dosage: 40 MG, QD
     Route: 048
  9. PRINIVIL [Concomitant]
     Dosage: 10 MG, QD
     Route: 048
  10. FORANE [Concomitant]
     Dosage: UNK
     Dates: start: 20000424, end: 20000424
  11. PAVULON [Concomitant]
     Dosage: UNK
     Dates: start: 20000424, end: 20000424
  12. EPHEDRINE [Concomitant]
     Dosage: UNK
     Dates: start: 20000424, end: 20000424
  13. HEPARIN [Concomitant]
     Dosage: UNK
     Dates: start: 20000424
  14. MYLANTA [ALUMINIUM HYDROXIDE GEL, DRIED,MAGNESIUM HYDROXIDE,SIMETI [Concomitant]
     Dosage: AS NEEDED
     Route: 048
  15. LIDOCAINE [Concomitant]
     Indication: PRODUCT USED FOR UNKNOWN INDICATION
  16. ACETYLSALICYLIC ACID SRT [Concomitant]
     Dosage: 325 MG, QD
     Route: 048
  17. MAXZIDE [Concomitant]
     Dosage: 75/50, DAILY
     Route: 048
  18. LOVATAL [Concomitant]
     Indication: PRODUCT USED FOR UNKNOWN INDICATION
  19. VERELAN [Concomitant]
     Dosage: 240 MG, QD
     Route: 048
  20. TRASYLOL [Suspect]
     Indication: CORONARY ARTERY BYPASS
     Dosage: UNK
     Route: 042
     Dates: start: 20000424
  21. DIOVAN [Concomitant]
     Indication: PRODUCT USED FOR UNKNOWN INDICATION
     Dosage: UNK
     Dates: start: 20000101
  22. PRILOSEC [Concomitant]
     Dosage: 40 MG, QD
     Route: 048
  23. FENTANYL-100 [Concomitant]
     Dosage: UNK
     Dates: start: 20000424, end: 20000424
  24. NITROGLYCERIN [Concomitant]
     Dosage: UNK
     Dates: start: 20000424
  25. CELEBREX [Concomitant]
     Indication: PRODUCT USED FOR UNKNOWN INDICATION
     Dosage: UNK
  26. NAMENDA [Concomitant]
     Indication: PRODUCT USED FOR UNKNOWN INDICATION
     Dosage: UNK
     Dates: start: 20000101

REACTIONS (13)
  - ANXIETY [None]
  - UNEVALUABLE EVENT [None]
  - EMOTIONAL DISTRESS [None]
  - MULTI-ORGAN FAILURE [None]
  - INJURY [None]
  - FEAR [None]
  - PAIN [None]
  - FEAR OF DEATH [None]
  - NERVOUSNESS [None]
  - ANHEDONIA [None]
  - RENAL INJURY [None]
  - DEPRESSION [None]
  - RENAL FAILURE [None]
